FAERS Safety Report 9156885 (Version 1)
Quarter: 2013Q1

REPORT INFORMATION
  Report Type: Spontaneous
  Country: DK (occurrence: None)
  Receive Date: 20130206
  Receipt Date: 20130206
  Transmission Date: 20140127
  Serious: Yes (Other)
  Sender: FDA-Public Use
  Company Number: 2013MA000904

PATIENT
  Age: 10 Year
  Sex: Female

DRUGS (2)
  1. ZOLPIDEM TARTRATE EXTENDED RELEASE [Suspect]
     Route: 048
     Dates: start: 20121018, end: 20121018
  2. XANAX [Concomitant]

REACTIONS (7)
  - Hallucination [None]
  - Diplopia [None]
  - Balance disorder [None]
  - Self-medication [None]
  - Accidental exposure to product by child [None]
  - Wrong drug administered [None]
  - Hypersomnia [None]
